FAERS Safety Report 9036351 (Version 2)
Quarter: 2013Q1

REPORT INFORMATION
  Report Type: Spontaneous
  Country: GB (occurrence: None)
  Receive Date: 20130114
  Receipt Date: 20130226
  Transmission Date: 20140127
  Serious: Yes (Other)
  Sender: FDA-Public Use
  Company Number: 2013009016

PATIENT
  Sex: Male

DRUGS (1)
  1. FRAGMIN (DALTEPARIN SODIUM) SOLUTION FOR INJECTION [Suspect]

REACTIONS (5)
  - Abdominal pain [None]
  - Soft tissue injury [None]
  - Needle issue [None]
  - Injury associated with device [None]
  - Needle issue [None]
